FAERS Safety Report 25595429 (Version 2)
Quarter: 2025Q3

REPORT INFORMATION
  Report Type: Spontaneous
  Country: JP (occurrence: JP)
  Receive Date: 20250723
  Receipt Date: 20250828
  Transmission Date: 20251020
  Serious: Yes (Other)
  Sender: TAKEDA
  Company Number: JP-TAKEDA-2025TJP007221

PATIENT
  Age: 3 Decade
  Sex: Female

DRUGS (2)
  1. TRINTELLIX [Suspect]
     Active Substance: VORTIOXETINE HYDROBROMIDE
     Indication: Depression
     Dosage: 10 MILLIGRAM, QD
     Dates: start: 20250601, end: 202506
  2. DAYVIGO [Concomitant]
     Active Substance: LEMBOREXANT

REACTIONS (2)
  - Bipolar disorder [Recovered/Resolved]
  - Nausea [Recovered/Resolved]
